FAERS Safety Report 8507899-8 (Version None)
Quarter: 2012Q3

REPORT INFORMATION
  Report Type: 
  Country: None (occurrence: None)
  Receive Date: 20120709
  Receipt Date: 20120709
  Transmission Date: 20120928
  Serious: No
  Sender: FDA-Public Use
  Company Number: None

PATIENT
  Age: 86 Year
  Sex: Male
  Weight: 81.6475 kg

DRUGS (1)
  1. ONGLYZA [Suspect]
     Indication: TYPE 2 DIABETES MELLITUS
     Dosage: ONE DAILY OTHER
     Dates: start: 20120520, end: 20120630

REACTIONS (5)
  - OEDEMA PERIPHERAL [None]
  - URTICARIA [None]
  - PRURITUS [None]
  - SWELLING FACE [None]
  - LIP SWELLING [None]
